FAERS Safety Report 5263174-9 (Version None)
Quarter: 2007Q1

REPORT INFORMATION
  Report Type: 
  Country: None (occurrence: None)
  Receive Date: 20070312
  Receipt Date: 20070228
  Transmission Date: 20070707
  Serious: Yes (Other)
  Sender: FDA-Public Use
  Company Number: NO-PFIZER INC-2007016565

PATIENT
  Sex: Male

DRUGS (9)
  1. LIPITOR [Suspect]
     Indication: HYPERCHOLESTEROLAEMIA
     Route: 048
     Dates: start: 19980101, end: 20030901
  2. MEVACOR [Suspect]
     Indication: HYPERCHOLESTEROLAEMIA
     Route: 048
     Dates: start: 20031001, end: 20031001
  3. LESCOL [Suspect]
     Indication: HYPERCHOLESTEROLAEMIA
     Route: 048
     Dates: start: 20031021, end: 20040113
  4. ZOCOR [Suspect]
     Indication: HYPERCHOLESTEROLAEMIA
     Route: 048
     Dates: start: 19930901, end: 19960601
  5. ZOCOR [Suspect]
     Route: 048
     Dates: start: 19960601, end: 19980101
  6. ALBYL-E [Concomitant]
     Route: 048
  7. SORBANGIL [Concomitant]
     Route: 048
  8. KREDEX [Concomitant]
     Route: 048
  9. SELO-ZOK [Concomitant]
     Dates: start: 19950201, end: 19980201

REACTIONS (3)
  - HEADACHE [None]
  - MYALGIA [None]
  - NERVOUS SYSTEM DISORDER [None]
